FAERS Safety Report 7368016-3 (Version None)
Quarter: 2011Q1

REPORT INFORMATION
  Report Type: 
  Country: None (occurrence: None)
  Receive Date: 20110322
  Receipt Date: 20110314
  Transmission Date: 20110831
  Serious: Yes (Other)
  Sender: FDA-Public Use
  Company Number: DK-BAYER-2011-022432

PATIENT
  Sex: Male

DRUGS (1)
  1. MAGNEVIST [Suspect]
     Indication: ANGIOGRAM
     Dosage: DAILY DOSE 40 ML
     Dates: start: 20040526, end: 20040526

REACTIONS (5)
  - VOMITING [None]
  - PYREXIA [None]
  - URINARY INCONTINENCE [None]
  - DIARRHOEA [None]
  - POLYNEUROPATHY [None]
